FAERS Safety Report 4356072-6 (Version None)
Quarter: 2004Q2

REPORT INFORMATION
  Report Type: 
  Country: None (occurrence: None)
  Receive Date: 20040429
  Receipt Date: 20030414
  Transmission Date: 20050107
  Serious: Yes (Other)
  Sender: FDA-Public Use
  Company Number: 1671506A

PATIENT
  Age: 2 Year
  Sex: Male
  Weight: 10.8863 kg

DRUGS (1)
  1. IMODIUM A-D [Suspect]

REACTIONS (1)
  - OVERDOSE [None]
